FAERS Safety Report 9603826 (Version 1)
Quarter: 2013Q4

REPORT INFORMATION
  Report Type: Spontaneous
  Country: US (occurrence: US)
  Receive Date: 20131008
  Receipt Date: 20131008
  Transmission Date: 20140711
  Serious: No
  Sender: FDA-Public Use
  Company Number: US-009507513-1310USA000990

PATIENT
  Sex: Female

DRUGS (1)
  1. NUVARING [Suspect]
     Indication: CONTRACEPTION
     Dosage: 4 WEEKS IN (USED THIS WAY LAST MONTH)
     Route: 067
     Dates: start: 201010

REACTIONS (3)
  - Hypomenorrhoea [Unknown]
  - Menstruation delayed [Recovered/Resolved]
  - Incorrect drug administration duration [Unknown]
